FAERS Safety Report 7873834-9 (Version None)
Quarter: 2011Q4

REPORT INFORMATION
  Report Type: 
  Country: None (occurrence: None)
  Receive Date: 20111030
  Receipt Date: 20110511
  Transmission Date: 20120403
  Serious: No
  Sender: FDA-Public Use
  Company Number: US-AMGEN-USASP2011024443

PATIENT
  Age: 53 Year
  Sex: Female

DRUGS (4)
  1. MOMETASONE FUROATE [Concomitant]
     Dosage: 0.1 %, UNK
     Route: 061
  2. VECTICAL [Concomitant]
     Route: 061
  3. ENBREL [Suspect]
     Indication: PRODUCT USED FOR UNKNOWN INDICATION
     Dosage: 50 MG, 2 TIMES/WK
     Route: 058
  4. PROTOPIC                           /01219901/ [Concomitant]
     Dosage: 0.1 %, UNK
     Route: 061

REACTIONS (3)
  - INJECTION SITE ERYTHEMA [None]
  - INJECTION SITE WARMTH [None]
  - INJECTION SITE SWELLING [None]
